FAERS Safety Report 14432984 (Version 6)
Quarter: 2018Q3

REPORT INFORMATION
  Report Type: Spontaneous
  Country: RU (occurrence: RU)
  Receive Date: 20180124
  Receipt Date: 20180924
  Transmission Date: 20181010
  Serious: Yes (Hospitalization, Other)
  Sender: FDA-Public Use
  Company Number: RU-ASTRAZENECA-2018SE08937

PATIENT
  Age: 84 Year
  Sex: Female
  Weight: 50 kg

DRUGS (10)
  1. BRILINTA [Suspect]
     Active Substance: TICAGRELOR
     Indication: MYOCARDIAL INFARCTION
     Route: 048
     Dates: start: 20180816, end: 20180823
  2. VITAMIN D [Concomitant]
     Active Substance: CHOLECALCIFEROL
  3. BRILINTA [Suspect]
     Active Substance: TICAGRELOR
     Indication: MYOCARDIAL INFARCTION
     Route: 048
     Dates: start: 20170823, end: 20180816
  4. MEZYM FORTE [Concomitant]
     Active Substance: PANCRELIPASE
  5. FUROSEMIDE. [Concomitant]
     Active Substance: FUROSEMIDE
  6. NIFEDIPINE. [Concomitant]
     Active Substance: NIFEDIPINE
  7. SIMVASTATIN. [Concomitant]
     Active Substance: SIMVASTATIN
  8. CARDIOMAGNYL [Concomitant]
     Active Substance: ASPIRIN\MAGNESIUM HYDROXIDE
  9. FESTAL [Concomitant]
  10. BISOPROLOL [Concomitant]
     Active Substance: BISOPROLOL

REACTIONS (13)
  - Chest pain [Recovering/Resolving]
  - Renal cyst [Not Recovered/Not Resolved]
  - Blood pressure increased [Recovered/Resolved]
  - Spinal compression fracture [Unknown]
  - Weight decreased [Not Recovered/Not Resolved]
  - Dizziness [Unknown]
  - Bile duct stone [Unknown]
  - Diarrhoea [Recovered/Resolved]
  - Cerebral ischaemia [Unknown]
  - Headache [Recovered/Resolved]
  - Intentional product misuse [Unknown]
  - Pancreatitis [Recovered/Resolved]
  - Haemoglobin decreased [Not Recovered/Not Resolved]

NARRATIVE: CASE EVENT DATE: 201709
